FAERS Safety Report 5957402-1 (Version None)
Quarter: 2008Q4

REPORT INFORMATION
  Report Type: 
  Country: None (occurrence: None)
  Receive Date: 20081118
  Receipt Date: 20081113
  Transmission Date: 20090506
  Serious: Yes (Hospitalization)
  Sender: FDA-Public Use
  Company Number: US-MERCK-0806USA08729

PATIENT
  Age: 76 Year
  Sex: Male

DRUGS (15)
  1. JANUVIA [Suspect]
     Route: 048
  2. JANUVIA [Suspect]
     Route: 048
  3. ASPIRIN [Concomitant]
     Route: 065
  4. CLOPIDOGREL BISULFATE [Concomitant]
     Route: 065
  5. OLMESARTAN MEDOXOMIL [Concomitant]
     Route: 065
  6. CARVEDILOL [Concomitant]
     Route: 065
  7. INSULIN [Concomitant]
     Route: 065
  8. METOLAZONE [Concomitant]
     Route: 065
  9. BUMETANIDE [Concomitant]
     Route: 065
  10. GLIPIZIDE [Concomitant]
     Route: 065
  11. LEVOTHYROXINE SODIUM [Concomitant]
     Route: 065
  12. SIMVASTATIN [Suspect]
     Route: 048
  13. SIMVASTATIN [Suspect]
     Route: 048
  14. EZETIMIBE [Suspect]
     Route: 048
  15. AMIODARONE [Concomitant]
     Route: 065

REACTIONS (2)
  - RENAL FAILURE ACUTE [None]
  - RHABDOMYOLYSIS [None]
